FAERS Safety Report 9475202 (Version 1)
Quarter: 2013Q3

REPORT INFORMATION
  Report Type: Spontaneous
  Country: IN (occurrence: IN)
  Receive Date: 20130825
  Receipt Date: 20130825
  Transmission Date: 20140515
  Serious: Yes (Other)
  Sender: FDA-Public Use
  Company Number: IN-MYLANLABS-2013S1018076

PATIENT
  Age: 55 Year
  Sex: Male

DRUGS (4)
  1. FLUOROURACIL [Suspect]
     Indication: COLON CANCER
     Dosage: 400MG/M2 OVER 2-4MINS (DAYS 1 + 2)
     Route: 065
  2. FLUOROURACIL [Suspect]
     Indication: COLON CANCER
     Dosage: 600MG/M2 AS 22H INFUSION (DAYS 1 + 2)
     Route: 041
  3. OXALIPLATIN [Suspect]
     Indication: COLON CANCER
     Dosage: 85MG/M2 OVER 120MINS (DAY 1)
     Route: 042
  4. FOLINIC ACID [Concomitant]
     Indication: COLON CANCER
     Dosage: 200MG/M2 OVER 120MINS (DAYS 1 + 2)
     Route: 042

REACTIONS (1)
  - Leukoencephalopathy [Recovered/Resolved]
